FAERS Safety Report 16030430 (Version 2)
Quarter: 2019Q1

REPORT INFORMATION
  Report Type: Spontaneous
  Country: IT (occurrence: IT)
  Receive Date: 20190304
  Receipt Date: 20190327
  Transmission Date: 20190418
  Serious: Yes (Hospitalization, Other)
  Sender: FDA-Public Use
  Company Number: IT-PFIZER INC-2019092565

PATIENT
  Age: 75 Year
  Sex: Female
  Weight: 130 kg

DRUGS (1)
  1. TRIATEC (RAMIPRIL) [Suspect]
     Active Substance: RAMIPRIL
     Indication: HYPOTENSION
     Dosage: 5 MG, AS NEEDED
     Route: 048

REACTIONS (6)
  - Face oedema [Not Recovered/Not Resolved]
  - Product packaging confusion [Unknown]
  - Intentional product misuse [Unknown]
  - Hypersensitivity [Not Recovered/Not Resolved]
  - Respiratory tract oedema [Not Recovered/Not Resolved]
  - Drug abuse [Unknown]

NARRATIVE: CASE EVENT DATE: 20190214
